FAERS Safety Report 21474994 (Version 1)
Quarter: 2022Q4

REPORT INFORMATION
  Report Type: Report from Study
  Country: US (occurrence: US)
  Receive Date: 20221019
  Receipt Date: 20221019
  Transmission Date: 20230112
  Serious: Yes (Hospitalization)
  Sender: FDA-Public Use
  Company Number: US-ABBVIE-4165038

PATIENT
  Sex: Male

DRUGS (1)
  1. VENCLEXTA [Suspect]
     Active Substance: VENETOCLAX
     Indication: Myeloid leukaemia
     Dosage: TAKE 4 TABLETS BY MOUTH ONCE DAILY WITH FOOD AND A FULL GLASS OF WATER AT THE SAME TIME EACH DAY?...
     Route: 048

REACTIONS (6)
  - White blood cell count abnormal [Unknown]
  - Platelet disorder [Unknown]
  - Asthenia [Unknown]
  - Gingival pain [Unknown]
  - Dysgeusia [Unknown]
  - Fatigue [Unknown]
